FAERS Safety Report 4950442-0 (Version None)
Quarter: 2006Q1

REPORT INFORMATION
  Report Type: 
  Country: None (occurrence: None)
  Receive Date: 20060322
  Receipt Date: 20060316
  Transmission Date: 20060701
  Serious: Yes (Other)
  Sender: FDA-Public Use
  Company Number: 2006UW04565

PATIENT
  Age: 35 Year
  Sex: Female
  Weight: 76.2 kg

DRUGS (5)
  1. SEROQUEL [Suspect]
     Indication: BIPOLAR DISORDER
     Route: 048
     Dates: start: 20050301
  2. ZANAFLEX [Concomitant]
  3. NAPROXEN [Concomitant]
  4. ADVAIR DISKUS 100/50 [Concomitant]
  5. FLOVENT [Concomitant]

REACTIONS (5)
  - ARTHRITIS [None]
  - ASTHMA [None]
  - FIBROMYALGIA [None]
  - HEPATITIS C [None]
  - WEIGHT INCREASED [None]
